FAERS Safety Report 8846139 (Version 2)
Quarter: 2012Q4

REPORT INFORMATION
  Report Type: 
  Country: FR (occurrence: FR)
  Receive Date: 20121018
  Receipt Date: 20121109
  Transmission Date: 20130627
  Serious: Yes (Other)
  Sender: FDA-Public Use
  Company Number: FR-AMGEN-FRASP2012065313

PATIENT
  Age: 65 Year
  Sex: Female
  Weight: 72 kg

DRUGS (4)
  1. ENBREL [Suspect]
     Indication: PSORIATIC ARTHROPATHY
     Dosage: 25 mg every 10 days
     Dates: start: 2004, end: 20121004
  2. BIPRETERAX                         /01421201/ [Concomitant]
     Indication: HYPERTENSION
     Dosage: 1 DF per day
     Route: 048
     Dates: start: 2012
  3. ISOPTIN                            /00014302/ [Concomitant]
     Indication: ATRIAL FIBRILLATION
     Dosage: 360 mg per day
     Route: 048
     Dates: start: 2012
  4. XARELTO [Concomitant]
     Indication: ATRIAL FIBRILLATION
     Dosage: 20 mg per day
     Route: 048
     Dates: start: 201208

REACTIONS (1)
  - Malignant melanoma in situ [Not Recovered/Not Resolved]
